FAERS Safety Report 25993121 (Version 1)
Quarter: 2025Q4

REPORT INFORMATION
  Report Type: Spontaneous
  Country: JP (occurrence: JP)
  Receive Date: 20251104
  Receipt Date: 20251104
  Transmission Date: 20260119
  Serious: Yes (Other)
  Sender: ROCHE
  Company Number: JP-CHUGAI-2025034580

PATIENT
  Age: 69 Year
  Sex: Female

DRUGS (2)
  1. PERJETA [Suspect]
     Active Substance: PERTUZUMAB
     Indication: Bladder cancer
     Dosage: UNK
     Route: 042
  2. HERCEPTIN [Suspect]
     Active Substance: TRASTUZUMAB
     Indication: Bladder cancer
     Dosage: UNK
     Route: 042

REACTIONS (2)
  - Skin disorder [Unknown]
  - Off label use [Unknown]
